FAERS Safety Report 8572643-5 (Version None)
Quarter: 2012Q3

REPORT INFORMATION
  Report Type: 
  Country: None (occurrence: None)
  Receive Date: 20120806
  Receipt Date: 20120802
  Transmission Date: 20120928
  Serious: Yes (Life-Threatening, Hospitalization, Other)
  Sender: FDA-Public Use
  Company Number: FR-ASTRAZENECA-2012SE50097

PATIENT
  Age: 15881 Day
  Sex: Female

DRUGS (20)
  1. THERALENE [Concomitant]
  2. ZOLPIDEM TARTRATE [Suspect]
     Route: 048
     Dates: end: 20111118
  3. SULFARLEM [Concomitant]
  4. VENTOLIN [Concomitant]
  5. ALFUZOSIN HYDROCHLORIDE [Suspect]
     Route: 048
     Dates: start: 20120121
  6. EUPRESSYL [Suspect]
     Route: 048
     Dates: start: 20120114
  7. LEPTICUR [Concomitant]
     Dates: end: 20111118
  8. DEPAMIDE [Suspect]
     Route: 048
     Dates: end: 20111118
  9. TERCIAN [Suspect]
     Route: 048
     Dates: end: 20111118
  10. GLUCOPHAGE [Suspect]
     Route: 048
  11. VALIUM [Concomitant]
     Dates: end: 20111118
  12. SERETIDE [Concomitant]
  13. CORDARONE [Suspect]
     Indication: ATRIAL FIBRILLATION
     Route: 048
     Dates: start: 20111201, end: 20120125
  14. ATORVASTATIN [Suspect]
     Route: 048
     Dates: start: 20120115, end: 20120118
  15. SEROQUEL [Suspect]
     Route: 048
     Dates: start: 20120104, end: 20120129
  16. PAROXETINE [Suspect]
     Route: 048
     Dates: end: 20111118
  17. RABEPRAZOLE SODIUM [Suspect]
     Route: 048
  18. LITHIUM CARBONATE [Concomitant]
  19. LYRICA [Concomitant]
  20. ACAMPROSATE CALCIUM [Concomitant]

REACTIONS (11)
  - ATRIAL FIBRILLATION [None]
  - PSEUDOMONAS INFECTION [None]
  - URINARY RETENTION [None]
  - COLITIS ISCHAEMIC [None]
  - SYSTEMIC INFLAMMATORY RESPONSE SYNDROME [None]
  - PNEUMOCOCCAL INFECTION [None]
  - SEPTIC SHOCK [None]
  - HYPERTHERMIA [None]
  - CHOLESTASIS [None]
  - RENAL FAILURE [None]
  - CYTOLYTIC HEPATITIS [None]
